FAERS Safety Report 9293814 (Version 1)
Quarter: 2013Q2

REPORT INFORMATION
  Report Type: Spontaneous
  Country: US (occurrence: US)
  Receive Date: 20130516
  Receipt Date: 20130516
  Transmission Date: 20140414
  Serious: Yes (Other)
  Sender: FDA-Public Use
  Company Number: US-ASTRAZENECA-2013SE32048

PATIENT
  Age: 49 Year
  Sex: Male
  Weight: 95.3 kg

DRUGS (10)
  1. SYMBICORT [Suspect]
     Indication: UPPER RESPIRATORY TRACT INFECTION
     Dosage: 320 MCG BID
     Route: 055
     Dates: start: 20130430
  2. SYMBICORT [Suspect]
     Indication: CHEST DISCOMFORT
     Dosage: 320 MCG BID
     Route: 055
     Dates: start: 20130430
  3. PRILOSEC OTC [Concomitant]
  4. PREVASTATIN [Concomitant]
  5. PEPCID [Concomitant]
  6. ACIDOPHILOUS [Concomitant]
  7. LORATIDINE [Concomitant]
     Indication: SEASONAL ALLERGY
  8. AUGMENTIN [Concomitant]
     Indication: UPPER RESPIRATORY TRACT INFECTION
  9. TUDORZA [Concomitant]
  10. ANTIBIOTICS [Concomitant]

REACTIONS (6)
  - Lip swelling [Recovered/Resolved with Sequelae]
  - Swelling face [Recovered/Resolved with Sequelae]
  - Local swelling [Recovered/Resolved with Sequelae]
  - Urticaria [Recovered/Resolved with Sequelae]
  - Pruritus [Recovered/Resolved with Sequelae]
  - Intentional drug misuse [Unknown]
